FAERS Safety Report 4725609-7 (Version None)
Quarter: 2005Q3

REPORT INFORMATION
  Report Type: 
  Country: None (occurrence: None)
  Receive Date: 20050727
  Receipt Date: 20050204
  Transmission Date: 20060218
  Serious: Yes (Disabling)
  Sender: FDA-Public Use
  Company Number: GB-MERCK-0502GBR00060

PATIENT
  Age: 62 Year
  Sex: Female
  Weight: 81 kg

DRUGS (2)
  1. VIOXX [Suspect]
     Indication: ARTHRITIS
     Route: 048
     Dates: start: 19990101, end: 20041001
  2. VIOXX [Suspect]
     Indication: SPONDYLITIS
     Route: 048
     Dates: start: 19990101, end: 20041001

REACTIONS (7)
  - DYSPNOEA [None]
  - EYE PAIN [None]
  - NEURITIS [None]
  - PAIN [None]
  - PAIN IN EXTREMITY [None]
  - RADICULITIS [None]
  - SCIATICA [None]
